FAERS Safety Report 19443970 (Version 1)
Quarter: 2021Q2

REPORT INFORMATION
  Report Type: Other
  Country: CA (occurrence: CA)
  Receive Date: 20210621
  Receipt Date: 20210621
  Transmission Date: 20210717
  Serious: Yes (Life-Threatening, Hospitalization, Other)
  Sender: FDA-Public Use
  Company Number: CA-PFIZER INC-2021664990

PATIENT
  Age: 16 Year
  Sex: Female
  Weight: 76 kg

DRUGS (7)
  1. NOREPINEPHRINE BITARTRATE. [Interacting]
     Active Substance: NOREPINEPHRINE BITARTRATE
  2. NAPROXEN. [Interacting]
     Active Substance: NAPROXEN
     Route: 048
  3. SODIUM CHLORIDE. [Concomitant]
     Active Substance: SODIUM CHLORIDE
  4. EPINEPHRINE. [Suspect]
     Active Substance: EPINEPHRINE
  5. ACETAMINOPHEN. [Interacting]
     Active Substance: ACETAMINOPHEN
     Route: 048
  6. PRAZOSIN. [Interacting]
     Active Substance: PRAZOSIN
  7. CALCIUM CHLORIDE/POTASSIUM CHLORIDE/SODIUM LACTATE [Concomitant]
     Active Substance: CALCIUM CHLORIDE\POTASSIUM CHLORIDE\SODIUM LACTATE

REACTIONS (13)
  - Drug interaction [Recovered/Resolved]
  - Electrocardiogram QT prolonged [Recovered/Resolved]
  - Overdose [Recovered/Resolved]
  - Renal impairment [Recovered/Resolved]
  - Sinus tachycardia [Recovered/Resolved]
  - Vomiting [Recovered/Resolved]
  - Hepatic function abnormal [Recovered/Resolved]
  - Metabolic acidosis [Recovered/Resolved]
  - Hypotension [Recovered/Resolved]
  - Toxicity to various agents [Recovered/Resolved]
  - Drug ineffective [Recovered/Resolved]
  - Altered state of consciousness [Recovered/Resolved]
  - Somnolence [Recovered/Resolved]
